FAERS Safety Report 20443427 (Version 1)
Quarter: 2022Q1

REPORT INFORMATION
  Report Type: Spontaneous
  Country: US (occurrence: None)
  Receive Date: 20220208
  Receipt Date: 20220208
  Transmission Date: 20220423
  Serious: Yes (Hospitalization)
  Sender: FDA-Public Use
  Company Number: US-ROCHE-3014992

PATIENT
  Sex: Female
  Weight: 78 kg

DRUGS (9)
  1. CELLCEPT [Suspect]
     Active Substance: MYCOPHENOLATE MOFETIL
     Indication: Product used for unknown indication
     Route: 065
  2. TYVASO [Suspect]
     Active Substance: TREPROSTINIL
     Indication: Pulmonary arterial hypertension
     Dosage: DELIVERED BY TYVASO INHALATION DEVICE (TD-300/A) (DEVICE ONLY)
     Route: 055
     Dates: start: 20180219
  3. TYVASO [Suspect]
     Active Substance: TREPROSTINIL
     Dosage: 18-54 MCG
     Route: 055
  4. RITUXIMAB [Concomitant]
     Active Substance: RITUXIMAB
     Route: 065
  5. PLAQUENIL [Concomitant]
     Active Substance: HYDROXYCHLOROQUINE SULFATE
  6. PREDNISONE [Concomitant]
     Active Substance: PREDNISONE
  7. SILDENAFIL [Concomitant]
     Active Substance: SILDENAFIL
  8. LASIX [Concomitant]
     Active Substance: FUROSEMIDE
  9. AMBRISENTAN [Concomitant]
     Active Substance: AMBRISENTAN

REACTIONS (6)
  - Pericardial effusion [Not Recovered/Not Resolved]
  - Hypervolaemia [Unknown]
  - Right ventricular failure [Unknown]
  - Leukopenia [Unknown]
  - Vascular resistance pulmonary increased [Unknown]
  - Ejection fraction decreased [Unknown]
